FAERS Safety Report 6635547-0 (Version None)
Quarter: 2010Q1

REPORT INFORMATION
  Report Type: 
  Country: None (occurrence: None)
  Receive Date: 20100315
  Receipt Date: 20091221
  Transmission Date: 20100710
  Serious: Yes (Other)
  Sender: FDA-Public Use
  Company Number: US-ABBOTT-09P-163-0616591-00

PATIENT
  Sex: Male
  Weight: 57.658 kg

DRUGS (1)
  1. DEPAKOTE [Suspect]
     Indication: EPILEPSY

REACTIONS (1)
  - CONVULSION [None]
